FAERS Safety Report 7296728-9 (Version None)
Quarter: 2011Q1

REPORT INFORMATION
  Report Type: 
  Country: None (occurrence: None)
  Receive Date: 20110204
  Receipt Date: 20110126
  Transmission Date: 20110831
  Serious: Yes (Other)
  Sender: FDA-Public Use
  Company Number: ALK_01533_2010

PATIENT
  Sex: Female

DRUGS (1)
  1. VIVITROL [Suspect]
     Indication: ALCOHOLISM
     Dosage: (380 MG 1X/MONTH INTRAMUSCULAR)
     Route: 030
     Dates: start: 20101101, end: 20101101

REACTIONS (4)
  - INJECTION SITE SWELLING [None]
  - PANNICULITIS LOBULAR [None]
  - INJECTION SITE NECROSIS [None]
  - INJECTION SITE INDURATION [None]
